FAERS Safety Report 20584338 (Version 1)
Quarter: 2022Q1

REPORT INFORMATION
  Report Type: Spontaneous
  Country: MX (occurrence: MX)
  Receive Date: 20220311
  Receipt Date: 20220311
  Transmission Date: 20220423
  Serious: Yes (Other)
  Sender: FDA-Public Use
  Company Number: MX-TAKEDA-2022TUS015989

PATIENT
  Age: 55 Year
  Sex: Male

DRUGS (1)
  1. PONATINIB [Suspect]
     Active Substance: PONATINIB
     Indication: Acute lymphocytic leukaemia
     Dosage: 45 MILLIGRAM, QD
     Route: 048
     Dates: start: 20220304, end: 20220308

REACTIONS (3)
  - Renal failure [Unknown]
  - Tumour lysis syndrome [Unknown]
  - Pleural effusion [Unknown]

NARRATIVE: CASE EVENT DATE: 20220304
